FAERS Safety Report 20612818 (Version 1)
Quarter: 2022Q1

REPORT INFORMATION
  Report Type: Spontaneous
  Country: US (occurrence: None)
  Receive Date: 20220316
  Receipt Date: 20220316
  Transmission Date: 20220424
  Serious: Yes (Hospitalization)
  Sender: FDA-Public Use
  Company Number: None

PATIENT
  Age: 74 Year
  Weight: 99.8 kg

DRUGS (10)
  1. REMICADE [Suspect]
     Active Substance: INFLIXIMAB
     Dosage: OTHER FREQUENCY : Q 8 WEEKS;?
  2. ENTYVIO [Concomitant]
     Active Substance: VEDOLIZUMAB
  3. ASPIRIN [Concomitant]
     Active Substance: ASPIRIN
  4. VASOTEC [Concomitant]
     Active Substance: ENALAPRIL MALEATE
  5. Albuterol (PROVENTIL HFA; VENTOLIN HFA0 [Concomitant]
  6. LIPITOR [Concomitant]
     Active Substance: ATORVASTATIN CALCIUM
  7. Calcium carbonate-vitamin D3 [Concomitant]
  8. CYANOCOBALAMIN [Concomitant]
     Active Substance: CYANOCOBALAMIN
  9. NEXIUM [Concomitant]
     Active Substance: ESOMEPRAZOLE MAGNESIUM
  10. Metoprolol tartrate (LOPRESSOR) [Concomitant]

REACTIONS (3)
  - Bronchitis [None]
  - Transient ischaemic attack [None]
  - Heart rate irregular [None]
